FAERS Safety Report 8446492-2 (Version None)
Quarter: 2012Q2

REPORT INFORMATION
  Report Type: 
  Country: None (occurrence: None)
  Receive Date: 20120618
  Receipt Date: 20120420
  Transmission Date: 20120825
  Serious: No
  Sender: FDA-Public Use
  Company Number: US-TEVA-334693USA

PATIENT
  Sex: Male
  Weight: 81.72 kg

DRUGS (8)
  1. TESTOSTERONE [Concomitant]
     Indication: HORMONE THERAPY
     Route: 061
  2. POLYETHYLENE GLYCOL [Concomitant]
     Indication: CONSTIPATION
     Route: 048
  3. TEMAZEPAM [Concomitant]
     Indication: INSOMNIA
  4. ESZOPICLONE [Concomitant]
     Indication: INSOMNIA
     Route: 048
  5. LIDOCAINE [Concomitant]
     Indication: PAIN
  6. MORPHINE SULFATE [Concomitant]
     Indication: PAIN
     Route: 048
  7. ACTIQ [Suspect]
     Indication: EHLERS-DANLOS SYNDROME
     Dosage: 3600 MICROGRAM;
     Route: 002
  8. ACTIQ [Suspect]
     Indication: BUDD-CHIARI SYNDROME

REACTIONS (3)
  - PAIN [None]
  - TREMOR [None]
  - OFF LABEL USE [None]
